FAERS Safety Report 7941619 (Version 5)
Quarter: 2013Q2

REPORT INFORMATION
  Report Type: Report from Study
  Country: JP (occurrence: JP)
  Receive Date: 20110512
  Receipt Date: 20130507
  Transmission Date: 20140414
  Serious: Yes (Death, Hospitalization, Other)
  Sender: FDA-Public Use
  Company Number: JP-CELGENEUS-087-21880-11012695

PATIENT
  Age: 80 Year
  Sex: Female
  Weight: 38.1 kg

DRUGS (39)
  1. REVLIMID [Suspect]
     Indication: PLASMA CELL MYELOMA
     Dosage: 5 MILLIGRAM
     Route: 048
     Dates: start: 20101120, end: 20101125
  2. REVLIMID [Suspect]
     Dosage: 5 MILLIGRAM
     Route: 048
     Dates: start: 20101130, end: 20101204
  3. REVLIMID [Suspect]
     Dosage: 5 MILLIGRAM
     Route: 048
     Dates: start: 20101209, end: 20101213
  4. REVLIMID [Suspect]
     Dosage: 5 MILLIGRAM
     Route: 048
     Dates: start: 20101219, end: 20101223
  5. REVLIMID [Suspect]
     Dosage: 5 MILLIGRAM
     Route: 048
     Dates: start: 20101229, end: 20110102
  6. REVLIMID [Suspect]
     Dosage: 5 MILLIGRAM
     Route: 048
     Dates: start: 20110108, end: 20110112
  7. REVLIMID [Suspect]
     Dosage: 5 MILLIGRAM
     Route: 048
     Dates: start: 20110118, end: 20110122
  8. REVLIMID [Suspect]
     Dosage: 5 MILLIGRAM
     Route: 048
     Dates: start: 20110128, end: 20110203
  9. REVLIMID [Suspect]
     Dosage: 5 MILLIGRAM
     Route: 048
     Dates: start: 20110209, end: 20110215
  10. REVLIMID [Suspect]
     Dosage: 5 MILLIGRAM
     Route: 048
     Dates: start: 20110221, end: 20110227
  11. REVLIMID [Suspect]
     Dosage: 5 MILLIGRAM
     Route: 048
     Dates: start: 20110305, end: 20110314
  12. REVLIMID [Suspect]
     Dosage: 5 MILLIGRAM
     Route: 048
     Dates: start: 20110320, end: 20110329
  13. REVLIMID [Suspect]
     Dosage: 5 MILLIGRAM
     Route: 048
     Dates: start: 20110404, end: 20110411
  14. LENADEX [Suspect]
     Indication: PLASMA CELL MYELOMA
     Dosage: 12 MILLIGRAM
     Route: 048
     Dates: start: 20101120, end: 20101120
  15. LENADEX [Suspect]
     Dosage: 4 MILLIGRAM
     Route: 048
     Dates: start: 20101130, end: 20101130
  16. LENADEX [Suspect]
     Dosage: 12 MILLIGRAM
     Route: 048
     Dates: start: 20101219, end: 20101219
  17. LENADEX [Suspect]
     Dosage: 12 MILLIGRAM
     Route: 048
     Dates: start: 20101229, end: 20101229
  18. LENADEX [Suspect]
     Dosage: 12 MILLIGRAM
     Route: 048
     Dates: start: 20110108, end: 20110108
  19. LENADEX [Suspect]
     Dosage: 12 MILLIGRAM
     Route: 048
     Dates: start: 20110118, end: 20110118
  20. LENADEX [Suspect]
     Dosage: 12 MILLIGRAM
     Route: 048
     Dates: start: 20110125, end: 20110125
  21. LENADEX [Suspect]
     Dosage: 12 MILLIGRAM
     Route: 048
     Dates: start: 20110128, end: 20110128
  22. LENADEX [Suspect]
     Dosage: 12 MILLIGRAM
     Route: 048
     Dates: start: 20110209, end: 20110209
  23. LENADEX [Suspect]
     Dosage: 12 MILLIGRAM
     Route: 048
     Dates: start: 20110221, end: 20110221
  24. LENADEX [Suspect]
     Dosage: 12 MILLIGRAM
     Route: 048
     Dates: start: 20110305, end: 20110305
  25. LENADEX [Suspect]
     Dosage: 12 MILLIGRAM
     Route: 048
     Dates: start: 20110312, end: 20110312
  26. LENADEX [Suspect]
     Dosage: 12 MILLIGRAM
     Route: 048
     Dates: start: 20110320, end: 20110320
  27. LENADEX [Suspect]
     Dosage: 12 MILLIGRAM
     Route: 048
     Dates: start: 20110327, end: 20110327
  28. LENADEX [Suspect]
     Dosage: 12 MILLIGRAM
     Route: 048
     Dates: start: 20110404, end: 20110404
  29. LENADEX [Suspect]
     Dosage: 12 MILLIGRAM
     Route: 048
     Dates: end: 20110411
  30. ITRIZOLE [Concomitant]
     Indication: PROPHYLAXIS
     Dosage: 150 MILLIGRAM
     Route: 048
     Dates: start: 20101120, end: 20110411
  31. TAKEPRON [Concomitant]
     Indication: PROPHYLAXIS
     Dosage: 15 MILLIGRAM
     Route: 048
     Dates: start: 20101120, end: 20110411
  32. AMLODIN [Concomitant]
     Indication: HYPERTENSION
     Dosage: 2.5 MILLIGRAM
     Route: 048
     Dates: start: 20101120, end: 20110411
  33. EVISTA [Concomitant]
     Indication: OSTEOPOROSIS
     Dosage: 60 MILLIGRAM
     Route: 048
     Dates: start: 20101120, end: 20110411
  34. EPADEL S [Concomitant]
     Indication: HYPERLIPIDAEMIA
     Dosage: 1200 MILLIGRAM
     Route: 048
     Dates: start: 20101120, end: 20110411
  35. BAKTAR [Concomitant]
     Indication: PROPHYLAXIS
     Dosage: 80 MILLIGRAM
     Route: 048
     Dates: start: 20101120, end: 20110411
  36. CALONAL [Concomitant]
     Indication: UNEVALUABLE EVENT
     Dosage: 800 MILLIGRAM
     Route: 048
     Dates: start: 20110107, end: 20110411
  37. LOXOPROFEN [Concomitant]
     Indication: UNEVALUABLE EVENT
     Dosage: 60 MILLIGRAM
     Route: 048
     Dates: start: 20110319, end: 20110411
  38. REBAMIPIDE [Concomitant]
     Indication: GASTRITIS
     Dosage: 300 MILLIGRAM
     Route: 048
     Dates: start: 20110305, end: 20110411
  39. FOIPAN [Concomitant]
     Indication: PROPHYLAXIS
     Dosage: 100 MILLIGRAM
     Route: 048
     Dates: start: 20101219, end: 20110411

REACTIONS (7)
  - Thrombosis [Fatal]
  - Pancreatitis [Recovering/Resolving]
  - Bronchitis [Recovered/Resolved]
  - Neutrophil count decreased [Recovered/Resolved]
  - Neutrophil count decreased [Recovered/Resolved]
  - Neutrophil count decreased [Recovered/Resolved]
  - Platelet count decreased [Not Recovered/Not Resolved]
